FAERS Safety Report 8589884-3 (Version None)
Quarter: 2012Q3

REPORT INFORMATION
  Report Type: 
  Country: None (occurrence: None)
  Receive Date: 20120813
  Receipt Date: 19901001
  Transmission Date: 20120928
  Serious: Yes (Other)
  Sender: FDA-Public Use
  Company Number: US-ROCHE-1098820

PATIENT
  Age: 64 Year
  Sex: Male

DRUGS (1)
  1. ACTIVASE [Suspect]

REACTIONS (1)
  - CHEST PAIN [None]
